FAERS Safety Report 8371866-8 (Version None)
Quarter: 2012Q2

REPORT INFORMATION
  Report Type: 
  Country: None (occurrence: None)
  Receive Date: 20120518
  Receipt Date: 20120508
  Transmission Date: 20120825
  Serious: Yes (Hospitalization)
  Sender: FDA-Public Use
  Company Number: CH-ROCHE-1060879

PATIENT
  Age: 79 Year
  Sex: Male

DRUGS (8)
  1. BENDAMUSTINE [Suspect]
     Indication: B-CELL LYMPHOMA
     Dosage: LAST DOSE:22/MAR/2012, TEMPORARILY STOPPED
     Route: 042
     Dates: start: 20111121
  2. TORSEMIDE [Concomitant]
     Route: 048
     Dates: start: 20111213
  3. LENALIDOMIDE [Suspect]
     Indication: B-CELL LYMPHOMA
     Dosage: LAST DOSE:05/APR/2012
     Route: 048
     Dates: start: 20111121
  4. PANTOPRAZOLE [Concomitant]
     Route: 048
     Dates: start: 20111116
  5. MEPROBAMAT [Concomitant]
     Route: 048
     Dates: start: 20110228
  6. MABTHERA [Suspect]
     Indication: B-CELL LYMPHOMA
     Dosage: LAST DOSE:21/MAR/2012, TEMPORARILY STOPPED
     Route: 042
     Dates: start: 20111121
  7. PHENPROCOUMON [Concomitant]
     Route: 048
  8. SOLIFENACIN SUCCINATE [Concomitant]
     Route: 048
     Dates: start: 20110228

REACTIONS (2)
  - GENERAL PHYSICAL HEALTH DETERIORATION [None]
  - LABORATORY TEST ABNORMAL [None]
